FAERS Safety Report 25989408 (Version 1)
Quarter: 2025Q4

REPORT INFORMATION
  Report Type: Spontaneous
  Country: EU (occurrence: EU)
  Receive Date: 20251103
  Receipt Date: 20251103
  Transmission Date: 20260118
  Serious: Yes (Death)
  Sender: VERITY PHARMACEUTICALS INC.
  Company Number: EU-VER-202500009

PATIENT
  Age: 63 Year
  Sex: Male
  Weight: 68 kg

DRUGS (10)
  1. TRIPTORELIN PAMOATE [Suspect]
     Active Substance: TRIPTORELIN PAMOATE
     Indication: Prostate cancer
     Dosage: POWDER FOR PROLONGED-RELEASE SUSPENSION FOR INJECT
     Route: 030
     Dates: start: 20250701, end: 20250701
  2. DEXAMETHASONE [Concomitant]
     Active Substance: DEXAMETHASONE
     Indication: Product used for unknown indication
     Route: 065
     Dates: start: 20250701, end: 20250804
  3. ACETAMINOPHEN [Concomitant]
     Active Substance: ACETAMINOPHEN
     Indication: Product used for unknown indication
     Route: 065
     Dates: start: 20250612
  4. OMEPRAZOLE [Concomitant]
     Active Substance: OMEPRAZOLE
     Indication: Product used for unknown indication
     Route: 065
     Dates: start: 202503
  5. MORPHINE [Concomitant]
     Active Substance: MORPHINE
     Indication: Product used for unknown indication
     Route: 065
     Dates: start: 202503, end: 20250804
  6. ACLIDINIUM BROMIDE\FORMOTEROL FUMARATE [Concomitant]
     Active Substance: ACLIDINIUM BROMIDE\FORMOTEROL FUMARATE
     Indication: Product used for unknown indication
     Route: 065
     Dates: start: 2024
  7. ENALAPRIL [Concomitant]
     Active Substance: ENALAPRIL
     Indication: Product used for unknown indication
     Route: 065
     Dates: start: 2021
  8. LUTETIUM OXODOTREOTIDE LU-177 [Suspect]
     Active Substance: LUTETIUM OXODOTREOTIDE LU-177
     Indication: Neuroendocrine cancer of the prostate metastatic
     Dosage: SOLUTION FOR INFUSION
     Route: 042
     Dates: start: 20250716
  9. GALLIUM GA-68 GOZETOTIDE [Suspect]
     Active Substance: GALLIUM GA-68 GOZETOTIDE
     Indication: Neuroendocrine cancer of the prostate metastatic
     Dosage: KIT FOR RADIOPHARMACEUTICAL PREPARATION
     Route: 042
     Dates: start: 20250625, end: 20250625
  10. GALLIUM OXODOTREOTIDE GA-68 [Suspect]
     Active Substance: GALLIUM OXODOTREOTIDE GA-68
     Indication: Neuroendocrine cancer of the prostate metastatic
     Dosage: KIT FOR RADIOPHARMACEUTICAL PREPARATION
     Route: 042
     Dates: start: 20250620, end: 20250620

REACTIONS (2)
  - Hot flush [Recovering/Resolving]
  - Death [Fatal]

NARRATIVE: CASE EVENT DATE: 20250701
